FAERS Safety Report 4862195-5 (Version None)
Quarter: 2005Q4

REPORT INFORMATION
  Report Type: 
  Country: None (occurrence: None)
  Receive Date: 20051221
  Receipt Date: 20051214
  Transmission Date: 20060501
  Serious: Yes (Other)
  Sender: FDA-Public Use
  Company Number: 2005UW18812

PATIENT
  Age: 64 Year
  Sex: Female
  Weight: 51.3 kg

DRUGS (2)
  1. NEXIUM [Suspect]
     Indication: GASTROOESOPHAGEAL REFLUX DISEASE
     Route: 048
     Dates: start: 20051027, end: 20051027
  2. LIPITOR [Concomitant]

REACTIONS (5)
  - DIZZINESS [None]
  - EYE SWELLING [None]
  - NAUSEA [None]
  - NERVOUSNESS [None]
  - SWELLING FACE [None]
